FAERS Safety Report 7410124-2 (Version None)
Quarter: 2011Q2

REPORT INFORMATION
  Report Type: 
  Country: None (occurrence: None)
  Receive Date: 20110412
  Receipt Date: 20110407
  Transmission Date: 20111010
  Serious: Yes (Hospitalization)
  Sender: FDA-Public Use
  Company Number: NO-PFIZER INC-2011073681

PATIENT
  Age: 15 Year
  Sex: Female

DRUGS (15)
  1. REMIFENTANIL [Suspect]
     Dates: start: 20110310, end: 20110310
  2. ONDANSETRON HCL [Suspect]
     Indication: PREOPERATIVE CARE
     Dosage: 4 MG, UNK
     Dates: start: 20110310, end: 20110310
  3. MARCAINE [Concomitant]
     Dosage: 25 MG, UNK
     Route: 048
     Dates: end: 20110310
  4. PERFALGAN [Concomitant]
     Dosage: 1 G, UNK
     Dates: end: 20110310
  5. FORTECORTIN [Concomitant]
     Dates: end: 20110310
  6. DYNASTAT [Concomitant]
     Dosage: 40 MG, 1X/DAY
     Route: 048
     Dates: end: 20110310
  7. DYNASTAT [Concomitant]
     Dates: end: 20110310
  8. REMIFENTANIL [Suspect]
     Indication: INDUCTION AND MAINTENANCE OF ANAESTHESIA
     Dosage: UNK
     Dates: start: 20110310
  9. PROPOFOL [Suspect]
     Dates: start: 20110310, end: 20110310
  10. MORFIN [Concomitant]
     Dosage: 5 MG, UNK
     Route: 048
     Dates: end: 20110310
  11. MORFIN [Concomitant]
     Dates: end: 20110310
  12. PERFALGAN [Concomitant]
     Dates: end: 20110310
  13. FORTECORTIN [Concomitant]
     Dosage: 8 MG, 1X/DAY
     Route: 048
     Dates: end: 20110310
  14. PROPOFOL [Suspect]
     Indication: INDUCTION AND MAINTENANCE OF ANAESTHESIA
     Dosage: 40 MG, UNK
     Dates: start: 20110310, end: 20110310
  15. MARCAINE [Concomitant]
     Dates: end: 20110310

REACTIONS (1)
  - DYSTONIA [None]
